FAERS Safety Report 25378555 (Version 1)
Quarter: 2025Q2

REPORT INFORMATION
  Report Type: Spontaneous
  Country: None (occurrence: MX)
  Receive Date: 20250530
  Receipt Date: 20250530
  Transmission Date: 20250716
  Serious: Yes (Disabling, Other)
  Sender: MYLAN
  Company Number: MX-MYLANLABS-2025M1045711

PATIENT
  Sex: Male
  Weight: 63 kg

DRUGS (5)
  1. CYSTAGON [Suspect]
     Active Substance: CYSTEAMINE BITARTRATE
     Indication: Cystinosis
     Dosage: 450 MILLIGRAM, QD (3 CAPSULES A DAY)
     Dates: start: 2007
  2. CYSTADROPS [Suspect]
     Active Substance: CYSTEAMINE HYDROCHLORIDE
     Indication: Cystinosis
     Dosage: UNK, QD (3 TO 4 DROPS DAILY)
     Dates: start: 202503, end: 20250517
  3. CYSTADROPS [Suspect]
     Active Substance: CYSTEAMINE HYDROCHLORIDE
     Dates: start: 20250518, end: 20250518
  4. PREDNISONE [Concomitant]
     Active Substance: PREDNISONE
     Indication: Renal transplant
     Dosage: 5 MILLIGRAM, QD (DAILY)
     Dates: start: 1976
  5. LEVOTHYROXINE SODIUM [Concomitant]
     Active Substance: LEVOTHYROXINE SODIUM
     Indication: Hypothyroidism
     Dosage: 125 MILLIGRAM, QD (DAILY)
     Dates: start: 2003

REACTIONS (2)
  - Ulcerative keratitis [Not Recovered/Not Resolved]
  - Off label use [Unknown]
